FAERS Safety Report 5297217-3 (Version None)
Quarter: 2007Q2

REPORT INFORMATION
  Report Type: 
  Country: None (occurrence: None)
  Receive Date: 20070416
  Receipt Date: 20070403
  Transmission Date: 20071010
  Serious: Yes (Hospitalization, Other)
  Sender: FDA-Public Use
  Company Number: US-JNJFOC-20070400955

PATIENT
  Age: 26 Year
  Sex: Female

DRUGS (6)
  1. REMICADE [Suspect]
     Route: 042
  2. REMICADE [Suspect]
     Indication: PSORIASIS
     Route: 042
  3. BENADRYL [Concomitant]
     Indication: PREMEDICATION
     Route: 065
  4. BENADRYL [Concomitant]
     Indication: PRURITUS
     Route: 065
  5. TYLENOL [Concomitant]
     Indication: PREMEDICATION
     Route: 065
  6. SOLU-CORTEF [Concomitant]
     Indication: PREMEDICATION
     Route: 065

REACTIONS (6)
  - CHEST PAIN [None]
  - DYSPNOEA [None]
  - HOSPITALISATION [None]
  - INFUSION RELATED REACTION [None]
  - PHARYNGOLARYNGEAL PAIN [None]
  - VOMITING [None]
